FAERS Safety Report 14998800 (Version 1)
Quarter: 2018Q2

REPORT INFORMATION
  Report Type: Spontaneous
  Country: FR (occurrence: FR)
  Receive Date: 20180612
  Receipt Date: 20180612
  Transmission Date: 20180711
  Serious: Yes (Other)
  Sender: FDA-Public Use
  Company Number: FR-TEVA-2018-FR-904178

PATIENT
  Age: 39 Year
  Sex: Female

DRUGS (3)
  1. MEPHENESIN [Suspect]
     Active Substance: MEPHENESIN
     Indication: DRUG ABUSE
     Dosage: UP TO 36G, FOR A YEAR
     Route: 065
  2. MEPHENESIN [Suspect]
     Active Substance: MEPHENESIN
     Indication: DRUG ABUSE
     Route: 065
  3. ALPRAZOLAM. [Suspect]
     Active Substance: ALPRAZOLAM
     Route: 065

REACTIONS (3)
  - Drug abuse [Unknown]
  - Overdose [Unknown]
  - Drug dependence [Unknown]
